FAERS Safety Report 7416168-9 (Version None)
Quarter: 2011Q2

REPORT INFORMATION
  Report Type: 
  Country: None (occurrence: None)
  Receive Date: 20110414
  Receipt Date: 20110318
  Transmission Date: 20111010
  Serious: No
  Sender: FDA-Public Use
  Company Number: US-B.I. PHARMACEUTICALS,INC./RIDGEFIELD-2011-BP-08723BP

PATIENT
  Sex: Female

DRUGS (2)
  1. CARBATROL [Suspect]
     Indication: TRIGEMINAL NEURALGIA
     Dosage: 600 MG
  2. PRADAXA [Suspect]

REACTIONS (2)
  - FATIGUE [None]
  - SLUGGISHNESS [None]
